FAERS Safety Report 16250683 (Version 1)
Quarter: 2019Q2

REPORT INFORMATION
  Report Type: Spontaneous
  Country: US (occurrence: US)
  Receive Date: 20190325
  Receipt Date: 20190325
  Transmission Date: 20190711
  Serious: Yes (Hospitalization)
  Sender: FDA-Public Use
  Company Number: None

PATIENT
  Age: 46 Year
  Sex: Female

DRUGS (7)
  1. DOK [Concomitant]
     Active Substance: DOCUSATE SODIUM
  2. LEFLUNOMIDE. [Concomitant]
     Active Substance: LEFLUNOMIDE
  3. CLOBETASOL [Suspect]
     Active Substance: CLOBETASOL
  4. BENZONATATE. [Concomitant]
     Active Substance: BENZONATATE
  5. VITAMIN D NOS [Suspect]
     Active Substance: VITAMIN D NOS
  6. XELJANZ [Suspect]
     Active Substance: TOFACITINIB CITRATE
     Indication: PSORIATIC ARTHROPATHY
     Route: 048
     Dates: start: 20181009
  7. ACYCLOVIR. [Concomitant]
     Active Substance: ACYCLOVIR

REACTIONS (1)
  - Herpes zoster [None]
